FAERS Safety Report 19994839 (Version 3)
Quarter: 2022Q2

REPORT INFORMATION
  Report Type: Spontaneous
  Country: AU (occurrence: AU)
  Receive Date: 20211025
  Receipt Date: 20220628
  Transmission Date: 20220721
  Serious: Yes (Other)
  Sender: FDA-Public Use
  Company Number: AU-GSKCCFAPAC-CASE-01333468_AE-50802

PATIENT

DRUGS (1)
  1. ALBUTEROL [Suspect]
     Active Substance: ALBUTEROL
     Indication: Product used for unknown indication
     Dosage: UNK, 100MCG 1X200D
     Route: 055

REACTIONS (4)
  - Brain neoplasm [Unknown]
  - Illness [Unknown]
  - Incorrect dose administered [Unknown]
  - Product complaint [Unknown]
